FAERS Safety Report 17568930 (Version 1)
Quarter: 2020Q1

REPORT INFORMATION
  Report Type: Spontaneous
  Country: BR (occurrence: BR)
  Receive Date: 20200321
  Receipt Date: 20200321
  Transmission Date: 20200409
  Serious: Yes (Other)
  Sender: FDA-Public Use
  Company Number: BR-AMGEN-BRASP2012079645

PATIENT
  Age: 59 Year
  Sex: Female
  Weight: 56 kg

DRUGS (6)
  1. ENBREL [Suspect]
     Active Substance: ETANERCEPT
     Indication: RHEUMATOID ARTHRITIS
     Dosage: 50 MILLIGRAM, QWK
     Route: 058
     Dates: start: 20121128
  2. METHOTREXATE. [Concomitant]
     Active Substance: METHOTREXATE
     Dosage: 15 MILLIGRAM, QWK
  3. ARAVA [Concomitant]
     Active Substance: LEFLUNOMIDE
     Dosage: 20 MILLIGRAM, QD
  4. METHOTREXATE. [Concomitant]
     Active Substance: METHOTREXATE
     Dosage: 6 DOSAGE FORM, QWK
  5. PRELONE [Concomitant]
     Active Substance: PREDNISOLONE
     Indication: RHEUMATOID ARTHRITIS
     Dosage: 5 MILLIGRAM, QD
  6. ENDOFOLIN [Concomitant]
     Active Substance: FOLIC ACID
     Dosage: 5 MILLIGRAM, QD

REACTIONS (8)
  - Productive cough [Not Recovered/Not Resolved]
  - Nasopharyngitis [Unknown]
  - Myocardial infarction [Unknown]
  - Pyrexia [Unknown]
  - Rhinorrhoea [Unknown]
  - Disease recurrence [Unknown]
  - Rhinitis [Unknown]
  - Pain [Unknown]

NARRATIVE: CASE EVENT DATE: 20121130
